FAERS Safety Report 12969211 (Version 1)
Quarter: 2016Q4

REPORT INFORMATION
  Report Type: Spontaneous
  Country: US (occurrence: US)
  Receive Date: 20161121
  Receipt Date: 20161121
  Transmission Date: 20170207
  Serious: Yes (Other)
  Sender: FDA-Public Use
  Company Number: None

PATIENT
  Age: 56 Year
  Sex: Female

DRUGS (5)
  1. DRONEDARONE [Concomitant]
     Active Substance: DRONEDARONE
  2. ACYCLOVIR. [Concomitant]
     Active Substance: ACYCLOVIR
  3. ONDANSETRON [Concomitant]
     Active Substance: ONDANSETRON
  4. FUROSEMIDE. [Concomitant]
     Active Substance: FUROSEMIDE
  5. AMPYRA [Suspect]
     Active Substance: DALFAMPRIDINE
     Indication: MULTIPLE SCLEROSIS
     Route: 048
     Dates: start: 201306

REACTIONS (1)
  - Urinary tract infection [None]

NARRATIVE: CASE EVENT DATE: 20161105
